FAERS Safety Report 19320703 (Version 1)
Quarter: 2021Q2

REPORT INFORMATION
  Report Type: Spontaneous
  Country: US (occurrence: US)
  Receive Date: 20210528
  Receipt Date: 20210528
  Transmission Date: 20210717
  Serious: Yes (Other)
  Sender: FDA-Public Use
  Company Number: None

PATIENT
  Age: 19 Year
  Sex: Female
  Weight: 65.25 kg

DRUGS (5)
  1. SYMICORT [Concomitant]
     Active Substance: BUDESONIDE\FORMOTEROL FUMARATE DIHYDRATE
  2. MONTELUKAS SOD TABS 10MG ? GENERIC FOR: SINGULAIR TABS [Suspect]
     Active Substance: MONTELUKAST SODIUM
     Indication: ASTHMA
     Dosage: ?          QUANTITY:1 TABLET(S);?
     Route: 048
     Dates: start: 20200801, end: 20210325
  3. ZYRTEC [Concomitant]
     Active Substance: CETIRIZINE HYDROCHLORIDE
  4. VITAMINS [Concomitant]
     Active Substance: VITAMINS
  5. LO?ESTRIN?HAILEY  28MG [Concomitant]

REACTIONS (5)
  - Depression [None]
  - Anxiety [None]
  - Mood swings [None]
  - Negative thoughts [None]
  - Restlessness [None]

NARRATIVE: CASE EVENT DATE: 20210325
